FAERS Safety Report 22528470 (Version 3)
Quarter: 2023Q2

REPORT INFORMATION
  Report Type: Spontaneous
  Country: DE (occurrence: DE)
  Receive Date: 20230607
  Receipt Date: 20230628
  Transmission Date: 20230721
  Serious: No
  Sender: FDA-Public Use
  Company Number: DE-ALKEM LABORATORIES LIMITED-DE-ALKEM-2023-05984

PATIENT
  Age: 19 Year
  Sex: Male

DRUGS (11)
  1. MYCOPHENOLATE MOFETIL [Interacting]
     Active Substance: MYCOPHENOLATE MOFETIL
     Indication: Kidney malformation
     Dosage: UNK
     Route: 065
  2. MYCOPHENOLATE MOFETIL [Interacting]
     Active Substance: MYCOPHENOLATE MOFETIL
     Indication: Urinary tract malformation
  3. TACROLIMUS [Interacting]
     Active Substance: TACROLIMUS
     Indication: Urinary tract malformation
     Dosage: UNK
     Route: 065
  4. TACROLIMUS [Interacting]
     Active Substance: TACROLIMUS
     Indication: Kidney malformation
  5. TOZINAMERAN [Interacting]
     Active Substance: TOZINAMERAN
     Indication: COVID-19 prophylaxis
     Dosage: 30 MICROGRAM (1ST VACCINATION)
     Route: 065
  6. TOZINAMERAN [Interacting]
     Active Substance: TOZINAMERAN
     Dosage: 30 MICROGRAM (2ND VACCINATION)
     Route: 065
  7. TOZINAMERAN [Interacting]
     Active Substance: TOZINAMERAN
     Dosage: 30 MICROGRAM (3RD VACCINATION)
     Route: 065
  8. PREDNISONE [Interacting]
     Active Substance: PREDNISONE
     Indication: Urinary tract malformation
     Dosage: UNK
     Route: 065
  9. PREDNISONE [Interacting]
     Active Substance: PREDNISONE
     Indication: Kidney malformation
  10. RITUXIMAB [Interacting]
     Active Substance: RITUXIMAB
     Indication: Kidney malformation
     Dosage: UNK
     Route: 065
  11. RITUXIMAB [Interacting]
     Active Substance: RITUXIMAB
     Indication: Urinary tract malformation

REACTIONS (1)
  - Vaccination failure [Unknown]
